FAERS Safety Report 5379990-9 (Version None)
Quarter: 2007Q3

REPORT INFORMATION
  Report Type: 
  Country: None (occurrence: None)
  Receive Date: 20070703
  Receipt Date: 20070618
  Transmission Date: 20080115
  Serious: Yes (Other)
  Sender: FDA-Public Use
  Company Number: DSJ-2007-01164

PATIENT
  Age: 55 Year
  Sex: Male

DRUGS (3)
  1. OLMETEC (OLMESARTAN MEDOXOMIL) (TABLET) (OLMESARTAN MEDOXOMIL) [Suspect]
     Indication: HYPERTENSION
     Dosage: 20 MG (20 MG, 1 IN 1 D), PER ORAL
     Route: 048
     Dates: start: 20061213, end: 20061226
  2. GASTER D (FAMOTIDINE) (TABLET) (FAMOTIDINE) [Suspect]
     Indication: GASTRITIS
     Dosage: 40 MG, (20 MG 2 IN 1 D), PER ORAL
     Route: 048
     Dates: start: 20061213, end: 20061226
  3. GLIMICRON (GLICLAZIDE) (GLICLAZIDE) [Suspect]
     Indication: DIABETES MELLITUS
     Dosage: 40 MG (40 MG, 1 IN 1 D), PER ORAL
     Route: 048
     Dates: start: 20061220, end: 20061223

REACTIONS (3)
  - ALANINE AMINOTRANSFERASE INCREASED [None]
  - ASPARTATE AMINOTRANSFERASE INCREASED [None]
  - LIVER DISORDER [None]
